FAERS Safety Report 6066679-6 (Version None)
Quarter: 2009Q1

REPORT INFORMATION
  Report Type: 
  Country: None (occurrence: None)
  Receive Date: 20090205
  Receipt Date: 20090126
  Transmission Date: 20090719
  Serious: Yes (Other)
  Sender: FDA-Public Use
  Company Number: GB-JNJCH-2009002938

PATIENT
  Age: 34 Year
  Sex: Male

DRUGS (2)
  1. DIPHENHYDRAMINE HCL [Suspect]
     Indication: EUPHORIC MOOD
     Route: 048
  2. THIOTHIXENE [Suspect]
     Indication: PSYCHOTIC DISORDER
     Dosage: TEXT:UNSPECIFIED
     Route: 065

REACTIONS (1)
  - DRUG ABUSE [None]
